FAERS Safety Report 10472664 (Version 1)
Quarter: 2014Q3

REPORT INFORMATION
  Report Type: Spontaneous
  Country: HK (occurrence: HK)
  Receive Date: 20140924
  Receipt Date: 20140924
  Transmission Date: 20150326
  Serious: Yes (Hospitalization)
  Sender: FDA-Public Use
  Company Number: HK-JNJFOC-20140912833

PATIENT
  Age: 15 Year
  Sex: Male

DRUGS (5)
  1. SODIUM VALPROATE [Suspect]
     Active Substance: VALPROATE SODIUM
     Indication: CONVULSION
     Dosage: WITH GRADUAL STEPPING UP FROM 15 TO 30 MG/KG/DAY)
     Route: 065
  2. TOPIRAMATE. [Suspect]
     Active Substance: TOPIRAMATE
     Indication: CONVULSION
     Dosage: 25 MG/KG/DAY TO 46 MG/KG/DAY
     Route: 048
  3. TOPIRAMATE. [Suspect]
     Active Substance: TOPIRAMATE
     Indication: CONVULSION
     Route: 048
  4. SODIUM VALPROATE [Suspect]
     Active Substance: VALPROATE SODIUM
     Indication: CONVULSION
     Dosage: 25 MG/KG/DAY TO 46 MG/KG/DAY
     Route: 065
  5. SODIUM VALPROATE [Suspect]
     Active Substance: VALPROATE SODIUM
     Indication: CONVULSION
     Dosage: 38 MG/KG/DAY
     Route: 065

REACTIONS (1)
  - Hyperammonaemic encephalopathy [Recovered/Resolved]
